FAERS Safety Report 11130486 (Version 1)
Quarter: 2015Q2

REPORT INFORMATION
  Report Type: Spontaneous
  Country: GB (occurrence: GB)
  Receive Date: 20150522
  Receipt Date: 20150522
  Transmission Date: 20150821
  Serious: Yes (Hospitalization)
  Sender: FDA-Public Use
  Company Number: GB-ACCORD-030879

PATIENT
  Age: 63 Year
  Sex: Male
  Weight: 57 kg

DRUGS (1)
  1. FLUOROURACIL. [Suspect]
     Active Substance: FLUOROURACIL
     Indication: SQUAMOUS CELL CARCINOMA OF THE HYPOPHARYNX
     Route: 042
     Dates: start: 20150507, end: 20150507

REACTIONS (1)
  - Arteriospasm coronary [Recovering/Resolving]

NARRATIVE: CASE EVENT DATE: 20150507
